FAERS Safety Report 7743329-1 (Version None)
Quarter: 2011Q3

REPORT INFORMATION
  Report Type: 
  Country: None (occurrence: None)
  Receive Date: 20110912
  Receipt Date: 20110902
  Transmission Date: 20111222
  Serious: Yes (Other)
  Sender: FDA-Public Use
  Company Number: US-ASTRAZENECA-2011SE53616

PATIENT
  Age: 60 Year
  Sex: Female

DRUGS (4)
  1. DEPAKOTE [Concomitant]
  2. SEROQUEL [Suspect]
     Route: 048
  3. CRESTOR [Suspect]
     Route: 048
  4. ABILIFY [Concomitant]

REACTIONS (8)
  - LIVER INJURY [None]
  - TREMOR [None]
  - MOOD SWINGS [None]
  - VOMITING [None]
  - ALOPECIA [None]
  - PANIC ATTACK [None]
  - DIARRHOEA [None]
  - DEPRESSION [None]
